FAERS Safety Report 6124165-9 (Version None)
Quarter: 2009Q1

REPORT INFORMATION
  Report Type: 
  Country: None (occurrence: None)
  Receive Date: 20090317
  Receipt Date: 20090304
  Transmission Date: 20090719
  Serious: Yes (Other)
  Sender: FDA-Public Use
  Company Number: 220047K09USA

PATIENT
  Age: 6 Year
  Sex: Female

DRUGS (1)
  1. SAIZEN [Suspect]
     Indication: GROWTH HORMONE DEFICIENCY
     Dosage: 0.7 MG, SUBCUTANEOUS
     Route: 058
     Dates: start: 20090101

REACTIONS (4)
  - ABDOMINAL PAIN UPPER [None]
  - DISEASE PROGRESSION [None]
  - PITUITARY CYST [None]
  - PYREXIA [None]
